FAERS Safety Report 4818481-8 (Version None)
Quarter: 2005Q4

REPORT INFORMATION
  Report Type: 
  Country: None (occurrence: None)
  Receive Date: 20051102
  Receipt Date: 20051028
  Transmission Date: 20060501
  Serious: Yes (Other)
  Sender: FDA-Public Use
  Company Number: IT-AVENTIS-200519498GDDC

PATIENT

DRUGS (1)
  1. LANTUS [Suspect]

REACTIONS (1)
  - KETOACIDOSIS [None]
